FAERS Safety Report 5931827-2 (Version None)
Quarter: 2008Q4

REPORT INFORMATION
  Report Type: 
  Country: None (occurrence: None)
  Receive Date: 20081027
  Receipt Date: 20081021
  Transmission Date: 20090506
  Serious: Yes (Hospitalization)
  Sender: FDA-Public Use
  Company Number: US-BAXTER-2008BH011274

PATIENT
  Age: 46 Year
  Sex: Female

DRUGS (5)
  1. CYCLOPHOSPHAMIDE [Suspect]
     Indication: BREAST CANCER
     Route: 042
     Dates: start: 20081010, end: 20081010
  2. PACLITAXEL [Suspect]
     Indication: BREAST CANCER
     Route: 042
     Dates: start: 20080829, end: 20080926
  3. EPIRUBICIN [Suspect]
     Indication: BREAST CANCER
     Route: 042
     Dates: start: 20080718, end: 20080815
  4. NEXIUM /UNK/ [Concomitant]
     Dates: start: 20080701
  5. FRAXIPARIN [Concomitant]
     Dates: start: 20080807

REACTIONS (2)
  - COGNITIVE DISORDER [None]
  - DIZZINESS [None]
